FAERS Safety Report 5798078-6 (Version None)
Quarter: 2008Q3

REPORT INFORMATION
  Report Type: 
  Country: None (occurrence: None)
  Receive Date: 20080702
  Receipt Date: 20070627
  Transmission Date: 20090109
  Serious: Yes (Disabling, Other)
  Sender: FDA-Public Use
  Company Number: US-ASTRAZENECA-2007UW13294

PATIENT
  Age: 11395 Day
  Sex: Female
  Weight: 91.6 kg

DRUGS (3)
  1. ZOLADEX [Suspect]
     Indication: UTERINE LEIOMYOMA
     Route: 058
     Dates: start: 20061204, end: 20061218
  2. ZOLADEX [Suspect]
     Indication: MENSTRUATION IRREGULAR
     Route: 058
     Dates: start: 20061204, end: 20061218
  3. OVACON 50 [Concomitant]

REACTIONS (2)
  - ANAEMIA [None]
  - UTERINE HAEMORRHAGE [None]
